FAERS Safety Report 15395024 (Version 1)
Quarter: 2018Q3

REPORT INFORMATION
  Report Type: Report from Study
  Country: TH (occurrence: TH)
  Receive Date: 20180918
  Receipt Date: 20180918
  Transmission Date: 20181010
  Serious: Yes (Other)
  Sender: FDA-Public Use
  Company Number: TH-TEVA-2018-TH-954184

PATIENT
  Age: 12 Year
  Sex: Male

DRUGS (6)
  1. BLEOMYCIN [Concomitant]
     Active Substance: BLEOMYCIN SULFATE
     Indication: GERM CELL NEOPLASM
     Dosage: 15 UNITS/M2 ON DAY 1; RECEIVED 4 CYCLES
     Route: 041
  2. ETOPOSIDE. [Suspect]
     Active Substance: ETOPOSIDE
     Indication: GERM CELL NEOPLASM
     Dosage: 100 MG/M2 ON DAY 1 TO 5; INITIALLY ADMINISTERED 4 CYCLES AS A COMPONENT OF PEB
     Route: 041
  3. CARBOPLATIN. [Concomitant]
     Active Substance: CARBOPLATIN
     Indication: GERM CELL NEOPLASM
     Dosage: 560 MG/M2 ON DAY 1; RECEIVED 4 CYCLES
     Route: 041
  4. CISPLATIN. [Concomitant]
     Active Substance: CISPLATIN
     Indication: GERM CELL NEOPLASM
     Dosage: 20 MG/M2 ON DAY 1 TO 5; RECEIVED 4 CYCLES
     Route: 041
  5. MESNA. [Concomitant]
     Active Substance: MESNA
     Indication: PRODUCT USED FOR UNKNOWN INDICATION
     Route: 065
  6. IFOSFAMIDE. [Concomitant]
     Active Substance: IFOSFAMIDE
     Indication: GERM CELL NEOPLASM
     Dosage: 1800 MG/M2 ON DAY 1 TO 5; RECEIVED 4 CYCLES
     Route: 041

REACTIONS (1)
  - Acute myeloid leukaemia [Unknown]
